FAERS Safety Report 7441481-9 (Version None)
Quarter: 2011Q2

REPORT INFORMATION
  Report Type: 
  Country: None (occurrence: None)
  Receive Date: 20110418
  Receipt Date: 20110405
  Transmission Date: 20111010
  Serious: Yes (Hospitalization)
  Sender: FDA-Public Use
  Company Number: 2011AL000019

PATIENT
  Age: 63 Year
  Sex: Male
  Weight: 84.6412 kg

DRUGS (3)
  1. FOLOTYN [Suspect]
     Indication: B-CELL LYMPHOMA
     Dosage: 60 MG; QW; IV
     Route: 042
     Dates: start: 20110328, end: 20110328
  2. FOLIC ACID [Concomitant]
  3. CYANOCOBALAMIN [Concomitant]

REACTIONS (12)
  - DYSPHAGIA [None]
  - PHARYNGEAL INFLAMMATION [None]
  - PYREXIA [None]
  - HAEMOPTYSIS [None]
  - EAR PAIN [None]
  - OROPHARYNGEAL PAIN [None]
  - THROMBOCYTOPENIA [None]
  - OESOPHAGITIS [None]
  - LARYNGEAL INFLAMMATION [None]
  - BLOOD CREATININE INCREASED [None]
  - STOMATITIS [None]
  - NAUSEA [None]
